FAERS Safety Report 7196251-6 (Version None)
Quarter: 2010Q4

REPORT INFORMATION
  Report Type: 
  Country: None (occurrence: None)
  Receive Date: 20101223
  Receipt Date: 20101020
  Transmission Date: 20110411
  Serious: No
  Sender: FDA-Public Use
  Company Number: US-AMGEN-USASP2010001818

PATIENT

DRUGS (7)
  1. ENBREL [Suspect]
     Indication: PRODUCT USED FOR UNKNOWN INDICATION
     Dosage: 50 MG, QWK
  2. ZOLPIDEM [Concomitant]
     Dosage: 5 MG, UNK
  3. LOVASTATIN [Concomitant]
     Dosage: 10 MG, UNK
  4. LISINOPRIL [Concomitant]
     Dosage: 2.5 UNK, UNK
  5. OMEPRAZOLE [Concomitant]
     Dosage: 10 MG, UNK
  6. WELLBUTRIN [Concomitant]
     Dosage: 75 MG, UNK
  7. DICLOFENAC [Concomitant]
     Dosage: 25 MG, UNK

REACTIONS (1)
  - PERTUSSIS [None]
